FAERS Safety Report 10460956 (Version 1)
Quarter: 2014Q3

REPORT INFORMATION
  Report Type: Spontaneous
  Country: US (occurrence: None)
  Receive Date: 20140917
  Receipt Date: 20140917
  Transmission Date: 20150326
  Serious: Yes (Life-Threatening, Disabling)
  Sender: FDA-Public Use
  Company Number: None

PATIENT
  Age: 33 Year
  Sex: Female
  Weight: 101.61 kg

DRUGS (1)
  1. KEPPRA [Suspect]
     Active Substance: LEVETIRACETAM
     Indication: PARTIAL SEIZURES
     Dosage: 1 PILL HS X 1 WK THEN BID
     Route: 048

REACTIONS (7)
  - Muscle twitching [None]
  - Homicidal ideation [None]
  - Confusional state [None]
  - Hallucination [None]
  - Anger [None]
  - Delusion [None]
  - Suicide attempt [None]

NARRATIVE: CASE EVENT DATE: 20140910
